FAERS Safety Report 13366367 (Version 1)
Quarter: 2017Q1

REPORT INFORMATION
  Report Type: Spontaneous
  Country: US (occurrence: US)
  Receive Date: 20170323
  Receipt Date: 20170323
  Transmission Date: 20170429
  Serious: Yes (Hospitalization)
  Sender: FDA-Public Use
  Company Number: None

PATIENT
  Age: 70 Year
  Sex: Female
  Weight: 88.5 kg

DRUGS (14)
  1. DACLATASVIR 60MG [Suspect]
     Active Substance: DACLATASVIR
     Indication: HEPATITIS C
     Route: 048
     Dates: start: 20160730, end: 20170114
  2. NADOLOL. [Concomitant]
     Active Substance: NADOLOL
  3. ALPREZOLAM [Concomitant]
  4. DACLATASVIR. [Concomitant]
     Active Substance: DACLATASVIR
  5. FULOXETINE [Concomitant]
  6. LOPERAMIDE [Concomitant]
     Active Substance: LOPERAMIDE
  7. METFORMIN [Concomitant]
     Active Substance: METFORMIN HYDROCHLORIDE
  8. XIFAXAN [Concomitant]
     Active Substance: RIFAXIMIN
  9. CETIRIZINE [Concomitant]
     Active Substance: CETIRIZINE HYDROCHLORIDE
  10. LACTULOSE. [Concomitant]
     Active Substance: LACTULOSE
  11. FOLIC ACID. [Concomitant]
     Active Substance: FOLIC ACID
  12. TRAZODONE [Concomitant]
     Active Substance: TRAZODONE HYDROCHLORIDE
  13. SOFOSBUVIR 400MG [Suspect]
     Active Substance: SOFOSBUVIR
     Indication: HEPATITIS C
     Route: 048
     Dates: start: 20160730, end: 20170114
  14. IRON SUCROSE COMPLEX [Concomitant]

REACTIONS (4)
  - Head injury [None]
  - Haematoma [None]
  - Fall [None]
  - Syncope [None]

NARRATIVE: CASE EVENT DATE: 20161010
